FAERS Safety Report 11867880 (Version 1)
Quarter: 2015Q4

REPORT INFORMATION
  Report Type: Spontaneous
  Country: US (occurrence: None)
  Receive Date: 20151223
  Receipt Date: 20151223
  Transmission Date: 20160305
  Serious: Yes (Other)
  Sender: FDA-Public Use
  Company Number: None

PATIENT
  Age: 66 Year
  Sex: Male
  Weight: 68.04 kg

DRUGS (11)
  1. NEXIUM [Concomitant]
     Active Substance: ESOMEPRAZOLE MAGNESIUM
  2. CYMBALTA [Concomitant]
     Active Substance: DULOXETINE HYDROCHLORIDE
  3. FLONASE [Concomitant]
     Active Substance: FLUTICASONE PROPIONATE
  4. TRAMADOL. [Suspect]
     Active Substance: TRAMADOL
     Indication: BACK PAIN
     Dosage: 1-2 PILLS FOUR TIMES DAILY TAKEN BY MOUTH
     Route: 048
  5. L-THYROXINE [Concomitant]
     Active Substance: LEVOTHYROXINE
  6. LOSARTAN/HCTZ [Concomitant]
     Active Substance: HYDROCHLOROTHIAZIDE\LOSARTAN
  7. CLONIDINE. [Concomitant]
     Active Substance: CLONIDINE
  8. TESTOSTERONE CYPIONATE. [Concomitant]
     Active Substance: TESTOSTERONE CYPIONATE
  9. VITAMIN D3 [Concomitant]
     Active Substance: CHOLECALCIFEROL
  10. CHOLESTOFF [Concomitant]
  11. CIALIS [Concomitant]
     Active Substance: TADALAFIL

REACTIONS (10)
  - Drug withdrawal syndrome [None]
  - Influenza like illness [None]
  - Ataxia [None]
  - Somnolence [None]
  - Pain in extremity [None]
  - Myalgia [None]
  - Diarrhoea [None]
  - Nausea [None]
  - Memory impairment [None]
  - Insomnia [None]

NARRATIVE: CASE EVENT DATE: 20151022
